FAERS Safety Report 9520674 (Version 3)
Quarter: 2013Q4

REPORT INFORMATION
  Report Type: Spontaneous
  Country: JP (occurrence: JP)
  Receive Date: 20130913
  Receipt Date: 20131122
  Transmission Date: 20140711
  Serious: Yes (Hospitalization)
  Sender: FDA-Public Use
  Company Number: JP-009507513-1309JPN004400

PATIENT
  Age: 12 Year
  Sex: Male

DRUGS (6)
  1. PEPCID [Suspect]
     Indication: PANCREATITIS
     Dosage: 15 MG, BID
     Route: 042
     Dates: start: 20130802, end: 20130819
  2. SAWACILLIN [Suspect]
     Indication: COLITIS ULCERATIVE
     Dosage: DAILY DOSE: 1250 MG
     Route: 048
     Dates: start: 20130730, end: 20130802
  3. FLAGYL [Suspect]
     Indication: COLITIS ULCERATIVE
     Dosage: 250 MG, TID
     Route: 048
     Dates: start: 20130730, end: 20130802
  4. ACHROMYCIN V [Suspect]
     Indication: COLITIS ULCERATIVE
     Dosage: DAILY DOSE: 1250MG (DIVIDED INTO 3 DOSES)
     Route: 048
     Dates: start: 20130730, end: 20130802
  5. FUTHAN [Suspect]
     Indication: PANCREATITIS
     Dosage: 10 MG, BID
     Route: 042
     Dates: start: 20130802, end: 20130816
  6. PENTASA [Suspect]
     Indication: COLITIS ULCERATIVE
     Dosage: 2000 MG, BID
     Route: 048
     Dates: start: 20130612

REACTIONS (4)
  - Pancreatitis [Recovering/Resolving]
  - Hepatitis [Recovering/Resolving]
  - Off label use [Unknown]
  - Off label use [Unknown]
